FAERS Safety Report 17812332 (Version 2)
Quarter: 2020Q2

REPORT INFORMATION
  Report Type: Spontaneous
  Country: GT (occurrence: GT)
  Receive Date: 20200521
  Receipt Date: 20200526
  Transmission Date: 20200714
  Serious: Yes (Other)
  Sender: FDA-Public Use
  Company Number: NVSC2020GT138005

PATIENT
  Sex: Male

DRUGS (1)
  1. GLIVEC [Suspect]
     Active Substance: IMATINIB MESYLATE
     Indication: ACUTE LYMPHOCYTIC LEUKAEMIA
     Dosage: 600 MG (1 OF 400 MG + 2 OF 100 MG, TABLETS)
     Route: 065

REACTIONS (4)
  - Headache [Unknown]
  - Ear haemorrhage [Unknown]
  - Diarrhoea [Unknown]
  - Pain in extremity [Unknown]
